FAERS Safety Report 7096040-7 (Version None)
Quarter: 2010Q4

REPORT INFORMATION
  Report Type: 
  Country: None (occurrence: None)
  Receive Date: 20101111
  Receipt Date: 20090616
  Transmission Date: 20110411
  Serious: No
  Sender: FDA-Public Use
  Company Number: US-KINGPHARMUSA00001-K200900718

PATIENT
  Sex: Female

DRUGS (6)
  1. LEVOXYL [Suspect]
     Dosage: UNK
  2. DEPO-PROVERA [Suspect]
     Indication: CONTRACEPTION
     Dosage: UNK
     Dates: start: 20060101, end: 20060101
  3. DEPAKOTE [Suspect]
     Indication: BIPOLAR I DISORDER
  4. LITHIUM [Suspect]
     Indication: BIPOLAR I DISORDER
     Dosage: UNK
  5. HALDOL [Suspect]
     Indication: BIPOLAR I DISORDER
  6. ZYPREXA [Suspect]
     Indication: BIPOLAR I DISORDER

REACTIONS (9)
  - DYSPNOEA [None]
  - GAIT DISTURBANCE [None]
  - HAEMATOCHEZIA [None]
  - HAEMATURIA [None]
  - MALAISE [None]
  - METRORRHAGIA [None]
  - NAUSEA [None]
  - VOMITING [None]
  - WEIGHT INCREASED [None]
